FAERS Safety Report 9125290 (Version 1)
Quarter: 2013Q1

REPORT INFORMATION
  Report Type: Report from Study
  Country: CZ (occurrence: CZ)
  Receive Date: 20130227
  Receipt Date: 20130227
  Transmission Date: 20140127
  Serious: Yes (Life-Threatening, Hospitalization)
  Sender: FDA-Public Use
  Company Number: PHHO2012CZ009905

PATIENT
  Age: 83 Year
  Sex: Male
  Weight: 70 kg

DRUGS (10)
  1. ATENOLOL [Suspect]
     Dosage: UNK
     Dates: start: 2010
  2. BLINDED ALISKIREN [Suspect]
     Indication: CARDIAC FAILURE CHRONIC
     Dosage: CODE NOT BROKEN
     Route: 048
     Dates: start: 20111116
  3. BLINDED ENALAPRIL [Suspect]
     Indication: CARDIAC FAILURE CHRONIC
     Dosage: CODE NOT BROKEN
     Route: 048
     Dates: start: 20111116
  4. BLINDED NO TREATMENT RECEIVED [Suspect]
     Indication: CARDIAC FAILURE CHRONIC
     Dosage: CODE NOT BROKEN
     Route: 048
     Dates: start: 20111116
  5. AMIODARONE [Concomitant]
     Dosage: 200 MG, UNK
     Dates: start: 20100216, end: 20120403
  6. CARVEDILOL [Concomitant]
     Dosage: 6.25 MG, UNK
     Dates: start: 20050806, end: 20120403
  7. FUROSEMIDE [Concomitant]
     Indication: CARDIAC FAILURE CHRONIC
     Dosage: UNK
     Dates: start: 2010
  8. SPIRONOLACTONE [Concomitant]
     Indication: CARDIAC FAILURE CHRONIC
     Dosage: UNK
     Dates: start: 20120203
  9. ACETYLSALICYLIC ACID [Concomitant]
     Indication: CORONARY ARTERY DISEASE
     Dosage: UNK
     Dates: start: 2010
  10. CLOPIDOGREL [Concomitant]
     Indication: CORONARY ARTERY DISEASE
     Dosage: UNK
     Dates: start: 20120627

REACTIONS (3)
  - Atrioventricular block [Recovered/Resolved]
  - Ventricular tachycardia [Recovered/Resolved]
  - Angina unstable [Recovering/Resolving]
